FAERS Safety Report 25682339 (Version 1)
Quarter: 2025Q3

REPORT INFORMATION
  Report Type: Spontaneous
  Country: CN (occurrence: CN)
  Receive Date: 20250814
  Receipt Date: 20250814
  Transmission Date: 20251021
  Serious: Yes (Death, Other)
  Sender: UNIQUE PHARMACEUTICAL LABORATORIES
  Company Number: CN-UNIQUE PHARMACEUTICAL LABORATORIES-20250800044

PATIENT

DRUGS (3)
  1. FLUCONAZOLE [Suspect]
     Active Substance: FLUCONAZOLE
     Indication: Infection
     Route: 042
  2. BIAPENEM [Concomitant]
     Active Substance: BIAPENEM
     Indication: Infection
     Route: 042
  3. IMIPENEM AND CILASTATIN [Concomitant]
     Active Substance: CILASTATIN SODIUM\IMIPENEM
     Indication: Infection
     Route: 042

REACTIONS (1)
  - Drug ineffective [Fatal]
